FAERS Safety Report 5702055-0 (Version None)
Quarter: 2008Q2

REPORT INFORMATION
  Report Type: 
  Country: None (occurrence: None)
  Receive Date: 20080411
  Receipt Date: 20070719
  Transmission Date: 20081010
  Serious: No
  Sender: FDA-Public Use
  Company Number: US-ABBOTT-07P-163-0375352-00

PATIENT
  Age: 30 Year
  Sex: Female

DRUGS (5)
  1. DEPAKOTE [Suspect]
     Indication: MOOD ALTERED
     Dates: end: 20070720
  2. DEPAKOTE [Suspect]
     Route: 048
     Dates: start: 20070720
  3. SERTRALINE [Concomitant]
     Indication: DRUG USE FOR UNKNOWN INDICATION
  4. TRAZODONE HCL [Concomitant]
     Indication: DEPRESSION
  5. TRAZODONE HCL [Concomitant]
     Indication: INSOMNIA

REACTIONS (3)
  - BURNING SENSATION [None]
  - NASAL INFLAMMATION [None]
  - PARAESTHESIA [None]
